FAERS Safety Report 6157907-7 (Version None)
Quarter: 2009Q2

REPORT INFORMATION
  Report Type: 
  Country: None (occurrence: None)
  Receive Date: 20090417
  Receipt Date: 20090406
  Transmission Date: 20091009
  Serious: Yes (Hospitalization)
  Sender: FDA-Public Use
  Company Number: NL-JNJFOC-20090402004

PATIENT
  Sex: Female

DRUGS (2)
  1. DOXORUBICIN HCL [Suspect]
     Indication: BREAST CANCER
     Route: 042
  2. CYCLOFOSFAMIDE [Suspect]
     Indication: BREAST CANCER
     Dosage: DOSE 1100 (UNITS NOT SPECIFIED)
     Route: 042

REACTIONS (3)
  - NAUSEA [None]
  - PANCREATITIS [None]
  - VOMITING [None]
